FAERS Safety Report 19933518 (Version 2)
Quarter: 2021Q4

REPORT INFORMATION
  Report Type: Spontaneous
  Country: DE (occurrence: None)
  Receive Date: 20211008
  Receipt Date: 20211109
  Transmission Date: 20220303
  Serious: No
  Sender: FDA-Public Use
  Company Number: DE-ROCHE-2919652

PATIENT
  Age: 35 Year
  Sex: Female
  Weight: 42 kg

DRUGS (4)
  1. EVRYSDI [Suspect]
     Active Substance: RISDIPLAM
     Indication: Spinal muscular atrophy
     Dosage: SOLUTION
     Route: 048
     Dates: start: 202105
  2. EVRYSDI [Suspect]
     Active Substance: RISDIPLAM
     Dosage: SOLUTION
     Route: 048
     Dates: start: 202104
  3. LAMOTRIGINE [Concomitant]
     Active Substance: LAMOTRIGINE
     Indication: Epilepsy
     Route: 048
     Dates: start: 2005
  4. LEVOTHYROXINE SODIUM [Concomitant]
     Active Substance: LEVOTHYROXINE SODIUM
     Indication: Hypothyroidism
     Route: 048
     Dates: start: 2010

REACTIONS (3)
  - Weight decreased [Not Recovered/Not Resolved]
  - C-reactive protein increased [Unknown]
  - Blood creatinine decreased [Unknown]
